FAERS Safety Report 9618642 (Version 2)
Quarter: 2013Q4

REPORT INFORMATION
  Report Type: Spontaneous
  Country: US (occurrence: US)
  Receive Date: 20131014
  Receipt Date: 20131120
  Transmission Date: 20140711
  Serious: Yes (Other)
  Sender: FDA-Public Use
  Company Number: US-PFIZER INC-2013293897

PATIENT
  Age: 52 Year
  Sex: Female
  Weight: 103 kg

DRUGS (3)
  1. LYRICA [Suspect]
     Indication: FIBROMYALGIA
     Dosage: 75 MG, 2X/DAY
     Route: 048
     Dates: start: 2010
  2. LYRICA [Suspect]
     Indication: BACK PAIN
  3. BUMEX [Concomitant]
     Dosage: UNK

REACTIONS (1)
  - Renal failure [Unknown]
